FAERS Safety Report 6641044-9 (Version None)
Quarter: 2010Q1

REPORT INFORMATION
  Report Type: 
  Country: None (occurrence: None)
  Receive Date: 20100318
  Receipt Date: 20091208
  Transmission Date: 20100710
  Serious: No
  Sender: FDA-Public Use
  Company Number: US-ASTRAZENECA-2009SE30851

PATIENT
  Age: 77 Year
  Sex: Female

DRUGS (8)
  1. TOPROL-XL [Suspect]
     Route: 048
  2. LISINOPRIL [Suspect]
     Route: 048
  3. FAMOTIDINE [Concomitant]
  4. ACETYLSALICYLIC ACID SRT [Concomitant]
  5. SYNTHROID [Concomitant]
  6. LASIX [Concomitant]
  7. PLAVIX [Concomitant]
  8. CRESTOR [Concomitant]

REACTIONS (8)
  - BLOOD PRESSURE DECREASED [None]
  - DIZZINESS [None]
  - FATIGUE [None]
  - MUSCULOSKELETAL PAIN [None]
  - NAUSEA [None]
  - NERVOUSNESS [None]
  - PALPITATIONS [None]
  - TREMOR [None]
